FAERS Safety Report 9155243 (Version 3)
Quarter: 2013Q2

REPORT INFORMATION
  Report Type: Report from Study
  Country: BR (occurrence: BR)
  Receive Date: 20130311
  Receipt Date: 20130515
  Transmission Date: 20140414
  Serious: Yes (Hospitalization, Other)
  Sender: FDA-Public Use
  Company Number: BR-ROCHE-1187419

PATIENT
  Sex: Female
  Weight: 65 kg

DRUGS (15)
  1. MABTHERA [Suspect]
     Indication: RHEUMATOID ARTHRITIS
     Route: 065
     Dates: start: 20120831
  2. LOSARTAN [Concomitant]
  3. ATENOLOL [Concomitant]
  4. CHLORTHALIDONE [Concomitant]
  5. SPIRONOLACTONE [Concomitant]
  6. CALCIUM CARBONATE [Concomitant]
  7. OMEPRAL [Concomitant]
  8. ALENIA (BRAZIL) [Concomitant]
  9. PREDNISONE [Concomitant]
  10. METHOTREXATE [Concomitant]
  11. CHLOROQUINE [Concomitant]
  12. AZITHROMYCIN [Concomitant]
  13. PARACETAMOL [Concomitant]
  14. PHENERGAN [Concomitant]
  15. HYDROCORTISONE [Concomitant]

REACTIONS (6)
  - Osteonecrosis [Unknown]
  - Arthropathy [Unknown]
  - Respiratory tract infection [Recovered/Resolved]
  - Asthenia [Recovered/Resolved]
  - Fatigue [Recovered/Resolved]
  - Tumour lysis syndrome [Unknown]
